FAERS Safety Report 10101946 (Version 1)
Quarter: 2014Q2

REPORT INFORMATION
  Report Type: Report from Study
  Country: DE (occurrence: DE)
  Receive Date: 20140424
  Receipt Date: 20140424
  Transmission Date: 20141212
  Serious: Yes (Other)
  Sender: FDA-Public Use
  Company Number: DE-UCBSA-118484

PATIENT
  Age: 56 Year
  Sex: Male

DRUGS (2)
  1. LEGANTO [Suspect]
     Indication: PARKINSON^S DISEASE
     Dates: start: 2013
  2. LEGANTO [Suspect]
     Indication: PARKINSON^S DISEASE
     Dates: start: 20130201, end: 2013

REACTIONS (1)
  - Blister [Not Recovered/Not Resolved]
